FAERS Safety Report 9915821 (Version 1)
Quarter: 2014Q1

REPORT INFORMATION
  Report Type: Spontaneous
  Country: GB (occurrence: None)
  Receive Date: 20140218
  Receipt Date: 20140218
  Transmission Date: 20141002
  Serious: Yes (Disabling, Other)
  Sender: FDA-Public Use
  Company Number: 2014/006

PATIENT
  Age: 78 Year
  Sex: Male

DRUGS (4)
  1. AMLODIPINE (NO PREF. NAME) [Suspect]
     Indication: HYPERTENSION
  2. TAFLUPROST TOPICAL (NO PREF. NAME) [Concomitant]
  3. ATENOLOL (NO PREF. NAME) [Concomitant]
  4. SIMVASTATIN [Suspect]

REACTIONS (2)
  - Pemphigoid [None]
  - Symblepharon [None]
